FAERS Safety Report 18120923 (Version 1)
Quarter: 2020Q3

REPORT INFORMATION
  Report Type: Spontaneous
  Country: US (occurrence: US)
  Receive Date: 20200806
  Receipt Date: 20200806
  Transmission Date: 20201103
  Serious: Yes (Hospitalization, Disabling, Other)
  Sender: FDA-Public Use
  Company Number: US-009507513-2008USA001171

PATIENT
  Age: 61 Year
  Sex: Female

DRUGS (2)
  1. KEYTRUDA [Suspect]
     Active Substance: PEMBROLIZUMAB
     Indication: ENDOMETRIAL NEOPLASM
     Route: 042
  2. LENVATINIB MESYLATE [Suspect]
     Active Substance: LENVATINIB MESYLATE
     Indication: ENDOMETRIAL NEOPLASM
     Dosage: 14 DOSAGE FORM, QD
     Route: 048
     Dates: start: 20200425, end: 202006

REACTIONS (23)
  - Sepsis [Recovered/Resolved]
  - Blood pressure fluctuation [Recovered/Resolved]
  - Nausea [Unknown]
  - Pain in extremity [Unknown]
  - Decreased appetite [Recovered/Resolved]
  - Hyperthyroidism [Unknown]
  - Hypomagnesaemia [Recovered/Resolved]
  - Fatigue [Recovered/Resolved]
  - Arthralgia [Not Recovered/Not Resolved]
  - Bronchial wall thickening [Unknown]
  - Sinus tachycardia [Recovered/Resolved]
  - Abdominal abscess [Recovered/Resolved]
  - Blood urea increased [Recovered/Resolved]
  - Vomiting [Unknown]
  - Dyspnoea exertional [Recovered/Resolved]
  - Small intestinal obstruction [Unknown]
  - Urinary tract infection [Recovered/Resolved]
  - Intestinal perforation [Unknown]
  - Lactic acidosis [Recovered/Resolved]
  - Abdominal adhesions [Recovered/Resolved]
  - Gastritis [Recovered/Resolved]
  - Blood pressure increased [Recovered/Resolved]
  - Hyperglycaemia [Recovered/Resolved]

NARRATIVE: CASE EVENT DATE: 2020
